FAERS Safety Report 6706936-0 (Version None)
Quarter: 2010Q2

REPORT INFORMATION
  Report Type: 
  Country: None (occurrence: None)
  Receive Date: 20100430
  Receipt Date: 20100430
  Transmission Date: 20101027
  Serious: Yes (Other)
  Sender: FDA-Public Use
  Company Number: None

PATIENT
  Age: 34 Year
  Sex: Female
  Weight: 93.8946 kg

DRUGS (2)
  1. SINGULAIR [Suspect]
     Indication: ASTHMA
     Dosage: 10MG DAILY
     Dates: start: 20100225, end: 20100308
  2. SINGULAIR [Suspect]
     Indication: PROPHYLAXIS
     Dosage: 10MG DAILY
     Dates: start: 20100225, end: 20100308

REACTIONS (3)
  - BEDRIDDEN [None]
  - DEPRESSION [None]
  - FATIGUE [None]
